FAERS Safety Report 5149935-5 (Version None)
Quarter: 2006Q4

REPORT INFORMATION
  Report Type: 
  Country: None (occurrence: None)
  Receive Date: 20061113
  Receipt Date: 20061109
  Transmission Date: 20070319
  Serious: Yes (Death)
  Sender: FDA-Public Use
  Company Number: DE-BOEHRINGER INGELHEIM PHARMACEUTICALS, INC.-2006-DE-05955DE

PATIENT
  Age: 49 Year
  Sex: Male
  Weight: 78 kg

DRUGS (5)
  1. SPIRIVA [Suspect]
     Indication: CHRONIC OBSTRUCTIVE PULMONARY DISEASE
     Route: 055
     Dates: start: 20060503
  2. KEPPRA [Concomitant]
     Indication: EPILEPSY
  3. ERGENYL CHRONO [Concomitant]
     Indication: EPILEPSY
  4. RAMIPRIL [Concomitant]
     Indication: HYPERTENSION
  5. THEOPHYLLINE [Concomitant]
     Indication: RESPIRATORY THERAPY

REACTIONS (2)
  - METASTASES TO CENTRAL NERVOUS SYSTEM [None]
  - METASTATIC BRONCHIAL CARCINOMA [None]
